FAERS Safety Report 6645990-1 (Version None)
Quarter: 2010Q1

REPORT INFORMATION
  Report Type: 
  Country: None (occurrence: None)
  Receive Date: 20100318
  Receipt Date: 20100311
  Transmission Date: 20100710
  Serious: Yes (Hospitalization)
  Sender: FDA-Public Use
  Company Number: TPA2010A01093

PATIENT
  Age: 62 Year
  Sex: Male

DRUGS (2)
  1. ULORIC [Suspect]
     Dosage: 40 MG, 1 IN 1 D, ORAL ; 80 MG, 1 IN 1 D, PER ORAL
     Route: 048
     Dates: end: 20090101
  2. ULORIC [Suspect]
     Dosage: 40 MG, 1 IN 1 D, ORAL ; 80 MG, 1 IN 1 D, PER ORAL
     Route: 048
     Dates: start: 20090101

REACTIONS (2)
  - CARDIAC FAILURE CONGESTIVE [None]
  - PNEUMONIA [None]
